FAERS Safety Report 5491838-0 (Version None)
Quarter: 2007Q4

REPORT INFORMATION
  Report Type: 
  Country: None (occurrence: None)
  Receive Date: 20071022
  Receipt Date: 20071015
  Transmission Date: 20080405
  Serious: Yes (Death, Life-Threatening, Hospitalization)
  Sender: FDA-Public Use
  Company Number: ES-BRISTOL-MYERS SQUIBB COMPANY-12716544

PATIENT
  Age: 74 Year
  Sex: Male

DRUGS (2)
  1. CETUXIMAB [Suspect]
     Indication: COLORECTAL CANCER METASTATIC
     Dosage: PT HAD REC'D 26 INFUSIONS OF STUDY DRUG. DISCONTINUED ON 06-SEP-04.
     Route: 041
     Dates: start: 20040209, end: 20040824
  2. IRINOTECAN HCL [Suspect]
     Indication: COLORECTAL CANCER METASTATIC
     Dosage: PT REC'D 13 INFUSIONS OF STUDY DRUG. DISCONTINUED ON 03-AUG-04.
     Route: 042
     Dates: start: 20040209, end: 20040803

REACTIONS (3)
  - CONVULSION [None]
  - HEAD INJURY [None]
  - SEPSIS [None]
